FAERS Safety Report 8410094-4 (Version None)
Quarter: 2012Q2

REPORT INFORMATION
  Report Type: 
  Country: None (occurrence: None)
  Receive Date: 20120605
  Receipt Date: 20120530
  Transmission Date: 20120825
  Serious: Yes (Hospitalization)
  Sender: FDA-Public Use
  Company Number: US-BAYER-2012-054589

PATIENT
  Age: 40 Year
  Sex: Female
  Weight: 99.79 kg

DRUGS (16)
  1. ASTEPRO [Concomitant]
     Dosage: 0.15 %, UNK
     Route: 045
  2. VICODIN [Concomitant]
     Indication: PAIN
  3. MAXALT [Concomitant]
     Dosage: 10 MG, UNK
  4. VENTOLIN HFA [Concomitant]
     Dosage: 90 ?G, UNK
     Route: 045
  5. PAROXETINE HCL [Concomitant]
     Dosage: 40 MG, UNK
  6. WELLBUTRIN XL [Concomitant]
     Dosage: 150 MG/24 HOURS, QD
     Route: 048
  7. BUPROPION HYDROCHLORIDE [Concomitant]
     Dosage: 150 MG, UNK
  8. FLUTICASONE PROPIONATE [Concomitant]
     Dosage: 50 ?G SPRAY, UNK
  9. PAROXETINE HCL [Concomitant]
     Dosage: 20 MG, UNK
  10. CEFUROXIME AXETIL [Concomitant]
     Dosage: 500 MG, UNK
  11. LORAZEPAM [Concomitant]
     Dosage: 0.5 MG, UNK
  12. PAXIL [Concomitant]
     Dosage: 20 MG, QD
     Route: 048
  13. YAZ [Suspect]
  14. DROSPIRENONE AND ETHINYL ESTRADIOL [Suspect]
  15. VERAPAMIL HCL [Concomitant]
     Dosage: 240MG/24 HOURS ONCE A DAY
     Route: 048
  16. ATIVAN [Concomitant]
     Dosage: 0.5 MG, PRN
     Route: 048
     Dates: end: 20111223

REACTIONS (1)
  - PULMONARY EMBOLISM [None]
